FAERS Safety Report 22922947 (Version 5)
Quarter: 2023Q4

REPORT INFORMATION
  Report Type: Report from Study
  Country: AT (occurrence: AT)
  Receive Date: 20230908
  Receipt Date: 20231124
  Transmission Date: 20240110
  Serious: Yes (Hospitalization)
  Sender: FDA-Public Use
  Company Number: AT-GENMAB-2023-01557

PATIENT
  Age: 85 Year
  Sex: Female
  Weight: 65 kg

DRUGS (8)
  1. EPCORITAMAB [Suspect]
     Active Substance: EPCORITAMAB
     Indication: Follicular lymphoma
     Dosage: 0.16 MG PRIMING DOSE; C1, D1, TOTAL
     Route: 058
     Dates: start: 20230817, end: 20230817
  2. EPCORITAMAB [Suspect]
     Active Substance: EPCORITAMAB
     Dosage: 0.8 MG INTERMEDIATE DOSE; C1, D8, TOTAL
     Route: 058
     Dates: start: 20230823, end: 20230823
  3. EPCORITAMAB [Suspect]
     Active Substance: EPCORITAMAB
     Dosage: 0.16 MG RE-PRIMING DOSE, TOTAL
     Route: 058
     Dates: start: 20230904
  4. RITUXIMAB [Suspect]
     Active Substance: RITUXIMAB
     Indication: Follicular lymphoma
     Dosage: 612 MG, EVERY 1 WEEKS
     Route: 042
     Dates: start: 20230817, end: 20230823
  5. RITUXIMAB [Suspect]
     Active Substance: RITUXIMAB
     Dosage: 612 MG, EVERY 1 WEEKS
     Route: 042
     Dates: start: 20230904
  6. LENALIDOMIDE [Suspect]
     Active Substance: LENALIDOMIDE
     Indication: Follicular lymphoma
     Dosage: 10 MG DAYS 1-21 OF A 28-DAY CYCLE; C1-12, EVERY 1 DAYS
     Route: 048
     Dates: start: 20230817
  7. ESOMEPRAZOLE [Concomitant]
     Active Substance: ESOMEPRAZOLE
     Indication: Gastrointestinal disorder prophylaxis
     Dosage: 40 MG, EVERY 1 DAYS
     Dates: start: 20230823
  8. MAGNESIUM ASPARTATE [Concomitant]
     Active Substance: MAGNESIUM ASPARTATE
     Indication: Prophylaxis
     Dosage: 1 DOSAGE FORM, 2/DAYS
     Dates: start: 20220920

REACTIONS (1)
  - Escherichia infection [Recovered/Resolved]

NARRATIVE: CASE EVENT DATE: 20230823
